FAERS Safety Report 8997848 (Version 2)
Quarter: 2013Q1

REPORT INFORMATION
  Report Type: Spontaneous
  Country: DE (occurrence: DE)
  Receive Date: 20130104
  Receipt Date: 20130201
  Transmission Date: 20140127
  Serious: Yes (Other)
  Sender: FDA-Public Use
  Company Number: DE-GLAXOSMITHKLINE-D0078291A

PATIENT
  Age: 74 Year
  Sex: Female

DRUGS (6)
  1. REQUIP [Suspect]
     Indication: PARKINSON^S DISEASE
     Dosage: 2MG PER DAY
     Route: 065
  2. MADOPAR [Suspect]
     Indication: RESTLESS LEGS SYNDROME
     Route: 065
  3. LEVETIRACETAM [Concomitant]
     Route: 065
  4. VALPROATE [Concomitant]
     Route: 065
  5. TILIDIN [Concomitant]
     Dosage: 54MG PER DAY
     Route: 065
  6. AMITRIPTYLINE [Concomitant]
     Dosage: 25MG PER DAY
     Route: 065

REACTIONS (5)
  - Dementia [Unknown]
  - Confusional state [Unknown]
  - Sensory disturbance [Unknown]
  - Memory impairment [Unknown]
  - Hypophagia [Unknown]
